FAERS Safety Report 11278557 (Version 4)
Quarter: 2019Q4

REPORT INFORMATION
  Report Type: Spontaneous
  Country: US (occurrence: US)
  Receive Date: 20150717
  Receipt Date: 20191211
  Transmission Date: 20200122
  Serious: Yes (Other)
  Sender: FDA-Public Use
  Company Number: US-TEVA-578659ACC

PATIENT
  Age: 35 Year
  Sex: Female

DRUGS (1)
  1. PARAGARD T 380A [Suspect]
     Active Substance: COPPER
     Indication: CONTRACEPTION
     Route: 015
     Dates: start: 20140718, end: 20150701

REACTIONS (3)
  - Abortion spontaneous [Unknown]
  - Maternal exposure during pregnancy [Unknown]
  - Pregnancy on contraceptive [Unknown]

NARRATIVE: CASE EVENT DATE: 20150715
